FAERS Safety Report 7330990-9 (Version None)
Quarter: 2011Q1

REPORT INFORMATION
  Report Type: 
  Country: None (occurrence: None)
  Receive Date: 20110304
  Receipt Date: 20110223
  Transmission Date: 20110831
  Serious: Yes (Other)
  Sender: FDA-Public Use
  Company Number: GB-US-EMD SERONO, INC.-7043588

PATIENT
  Sex: Female

DRUGS (3)
  1. COAPROVEL (CO-APROVAL) [Concomitant]
     Indication: BLOOD PRESSURE
  2. BACLOFEN [Concomitant]
     Indication: MUSCLE SPASTICITY
  3. REBIF [Suspect]
     Indication: PRODUCT USED FOR UNKNOWN INDICATION
     Dates: start: 20070101

REACTIONS (3)
  - DEAFNESS UNILATERAL [None]
  - TINNITUS [None]
  - MUSCLE SPASTICITY [None]
